FAERS Safety Report 7424979-9 (Version None)
Quarter: 2011Q2

REPORT INFORMATION
  Report Type: 
  Country: None (occurrence: None)
  Receive Date: 20110419
  Receipt Date: 20110406
  Transmission Date: 20111010
  Serious: Yes (Other)
  Sender: FDA-Public Use
  Company Number: RU-BAYER-2011-029637

PATIENT
  Age: 21 Year
  Sex: Female

DRUGS (1)
  1. YARINA [Suspect]
     Indication: HYPERANDROGENISM
     Dosage: 1 DF, ONCE
     Route: 048
     Dates: start: 20100301, end: 20100418

REACTIONS (10)
  - VOMITING [None]
  - EPISTAXIS [None]
  - BREAST TENDERNESS [None]
  - ASTHENIA [None]
  - DIZZINESS [None]
  - FATIGUE [None]
  - NAUSEA [None]
  - SOMNOLENCE [None]
  - INCREASED APPETITE [None]
  - WEIGHT INCREASED [None]
